FAERS Safety Report 7422110-7 (Version None)
Quarter: 2011Q2

REPORT INFORMATION
  Report Type: 
  Country: None (occurrence: None)
  Receive Date: 20110418
  Receipt Date: 20110408
  Transmission Date: 20111010
  Serious: Yes (Hospitalization, Other)
  Sender: FDA-Public Use
  Company Number: CA-ABBOTT-98P-028-0556835-00

PATIENT
  Sex: Male
  Weight: 79.45 kg

DRUGS (6)
  1. EUFLEX [Concomitant]
     Indication: PROSTATE CANCER
     Route: 048
     Dates: start: 19970130, end: 19970424
  2. LANOXIN [Concomitant]
     Indication: CARDIAC FAILURE CONGESTIVE
     Route: 048
     Dates: start: 19900101
  3. PREDNISONE [Concomitant]
     Indication: CHRONIC OBSTRUCTIVE PULMONARY DISEASE
     Route: 048
     Dates: start: 19970101
  4. NITROGLYCERIN [Concomitant]
     Indication: CARDIAC FAILURE CONGESTIVE
     Dates: start: 19970101
  5. LUPRON DEPOT [Suspect]
     Indication: PROSTATE CANCER
     Route: 030
     Dates: start: 19970130, end: 19970428
  6. NOVOPIROCAM [Concomitant]
     Indication: ARTHRITIS
     Route: 048
     Dates: start: 19850101

REACTIONS (3)
  - INGUINAL HERNIA [None]
  - MUSCULAR WEAKNESS [None]
  - BLADDER TRANSITIONAL CELL CARCINOMA [None]
